FAERS Safety Report 6375654-3 (Version None)
Quarter: 2009Q3

REPORT INFORMATION
  Report Type: 
  Country: None (occurrence: None)
  Receive Date: 20090921
  Receipt Date: 20090910
  Transmission Date: 20100115
  Serious: Yes (Hospitalization)
  Sender: FDA-Public Use
  Company Number: 2008AL010867

PATIENT
  Age: 58 Year
  Sex: Male

DRUGS (17)
  1. DIGOXIN [Suspect]
     Dosage: 250 MCG, DAILY, PO
     Route: 048
     Dates: start: 19990101
  2. LISINOPRIL [Concomitant]
  3. LOVASTATIN [Concomitant]
  4. LASIX [Concomitant]
  5. COREG [Concomitant]
  6. COZAAR [Concomitant]
  7. JANTOVEN [Concomitant]
  8. GLIPIZIDE [Concomitant]
  9. SPIRONOLACTONE [Concomitant]
  10. COUMADIN [Concomitant]
  11. ISOSORBIDE AND TERAZOSIN [Concomitant]
  12. ALDACTONE [Concomitant]
  13. FLOMAX [Concomitant]
  14. ZOCOR [Concomitant]
  15. NITROGLYCERIN [Concomitant]
  16. HEPARIN [Concomitant]
  17. ASPIRIN [Concomitant]

REACTIONS (14)
  - ANXIETY [None]
  - CARDIAC FAILURE CONGESTIVE [None]
  - CONGESTIVE CARDIOMYOPATHY [None]
  - CORONARY ARTERY DISEASE [None]
  - DYSPNOEA [None]
  - ECONOMIC PROBLEM [None]
  - EJECTION FRACTION DECREASED [None]
  - FATIGUE [None]
  - HYPOAESTHESIA [None]
  - INJURY [None]
  - PAIN [None]
  - PARAESTHESIA [None]
  - SURGERY [None]
  - VENTRICULAR TACHYCARDIA [None]
